FAERS Safety Report 7013801-0 (Version None)
Quarter: 2010Q3

REPORT INFORMATION
  Report Type: 
  Country: None (occurrence: None)
  Receive Date: 20100924
  Receipt Date: 20100909
  Transmission Date: 20110219
  Serious: Yes (Hospitalization)
  Sender: FDA-Public Use
  Company Number: DE-GENENTECH-305967

PATIENT
  Sex: Female
  Weight: 72 kg

DRUGS (12)
  1. RITUXIMAB [Suspect]
     Indication: B-CELL LYMPHOMA
     Dosage: 660 MG, 1/MONTH
     Route: 042
     Dates: start: 20090216
  2. RITUXIMAB [Suspect]
     Dosage: 660 MG/M2, Q2M
     Route: 042
     Dates: start: 20091027
  3. MITOXANTRON [Suspect]
     Indication: B-CELL LYMPHOMA
     Dosage: 14 MG, 1/MONTH
     Route: 042
     Dates: start: 20090217
  4. CHLORAMBUCIL [Suspect]
     Indication: B-CELL LYMPHOMA
     Dosage: 15.9 MG, 1/MONTH
     Route: 048
     Dates: start: 20090217
  5. PREDNISOLONE [Suspect]
     Indication: B-CELL LYMPHOMA
     Dosage: 40 MG, 1/MONTH
     Route: 048
     Dates: start: 20090217
  6. RAMIPRIL [Concomitant]
     Indication: PRODUCT USED FOR UNKNOWN INDICATION
     Dosage: UNK
     Dates: end: 20090316
  7. PROTAPHANE [Concomitant]
     Indication: PRODUCT USED FOR UNKNOWN INDICATION
     Dosage: UNK
  8. PROTAPHANE [Concomitant]
     Dosage: UNK
  9. SIOFOR [Concomitant]
     Indication: PRODUCT USED FOR UNKNOWN INDICATION
     Dosage: 2 DF, QD
  10. ACTRAPID NOVOLET [Concomitant]
     Indication: PRODUCT USED FOR UNKNOWN INDICATION
     Dosage: UNK
  11. INSULIN [Concomitant]
     Indication: PRODUCT USED FOR UNKNOWN INDICATION
     Dosage: UNK
  12. METOPROLOL SUCCINATE [Concomitant]
     Indication: PRODUCT USED FOR UNKNOWN INDICATION
     Dosage: 1 DF, UNK

REACTIONS (5)
  - BRONCHOPNEUMONIA [None]
  - DEEP VEIN THROMBOSIS [None]
  - ENCEPHALITIS [None]
  - PNEUMONIA PRIMARY ATYPICAL [None]
  - PULMONARY EMBOLISM [None]
